FAERS Safety Report 8119073-8 (Version None)
Quarter: 2012Q1

REPORT INFORMATION
  Report Type: 
  Country: None (occurrence: None)
  Receive Date: 20120207
  Receipt Date: 20120203
  Transmission Date: 20120608
  Serious: No
  Sender: FDA-Public Use
  Company Number: US-PFIZER INC-2012019452

PATIENT
  Sex: Male

DRUGS (2)
  1. NITROSTAT [Suspect]
     Indication: CARDIAC DISORDER
     Dosage: UNK
  2. LIPITOR [Suspect]
     Dosage: UNK

REACTIONS (2)
  - INCORRECT DOSE ADMINISTERED [None]
  - CONFUSIONAL STATE [None]
